FAERS Safety Report 19093914 (Version 2)
Quarter: 2021Q2

REPORT INFORMATION
  Report Type: Spontaneous
  Country: BR (occurrence: BR)
  Receive Date: 20210405
  Receipt Date: 20210420
  Transmission Date: 20210717
  Serious: Yes (Other)
  Sender: FDA-Public Use
  Company Number: NVSC2021BR072116

PATIENT
  Age: 54 Year
  Sex: Female

DRUGS (2)
  1. ALPELISIB [Suspect]
     Active Substance: ALPELISIB
     Indication: BREAST NEOPLASM
     Dosage: 2 DF, QD
     Route: 048
     Dates: start: 20210320, end: 20210402
  2. FULVESTRANT. [Concomitant]
     Active Substance: FULVESTRANT
     Indication: BREAST NEOPLASM
     Dosage: UNK (2 AMPOULES, EVERY 28 DAYS)
     Route: 030
     Dates: start: 202005, end: 202103

REACTIONS (2)
  - Erythema multiforme [Unknown]
  - Rash [Recovering/Resolving]

NARRATIVE: CASE EVENT DATE: 20210320
